FAERS Safety Report 8599438-0 (Version None)
Quarter: 2012Q3

REPORT INFORMATION
  Report Type: 
  Country: None (occurrence: None)
  Receive Date: 20120816
  Receipt Date: 20120808
  Transmission Date: 20120928
  Serious: Yes (Life-Threatening, Hospitalization, Other)
  Sender: FDA-Public Use
  Company Number: CZ-JNJFOC-20120715366

PATIENT
  Sex: Male
  Weight: 84 kg

DRUGS (14)
  1. REMICADE [Suspect]
     Indication: PRODUCT USED FOR UNKNOWN INDICATION
     Route: 042
  2. METHOTREXATE [Concomitant]
     Dosage: STRENGTH: 20
     Route: 065
  3. AULIN [Concomitant]
     Route: 065
  4. ACIDUM FOLICUM [Concomitant]
     Dosage: 1 TBL
     Route: 065
  5. MEDROL [Concomitant]
     Dosage: OCCASIONALLY
     Route: 065
  6. REMICADE [Suspect]
     Dosage: 13TH INFLIXIMAB INFUSION
     Route: 042
     Dates: start: 20120530
  7. ARAVA [Concomitant]
     Dosage: STRENGTH: 20 (UNITS UNSPECIFIED)
     Route: 065
  8. ATORIS [Concomitant]
     Dosage: OCCASIONALLY
     Route: 065
  9. ALL OTHER THERAPEUTICS [Concomitant]
     Dosage: OCCASIONALLY
     Route: 065
  10. ASPIRIN [Concomitant]
     Dosage: 100 UNITS UNSPECIFIED
     Route: 065
  11. METOPROLOL TARTRATE [Concomitant]
     Dosage: OCCASIONALLY
     Route: 065
  12. NOLPAZA [Concomitant]
     Dosage: OCCASIONALLY
     Route: 065
  13. CORTICOSTEROIDS [Concomitant]
     Route: 065
  14. PRENESSA [Concomitant]
     Dosage: OCCASIONALLY
     Route: 065

REACTIONS (1)
  - MYOCARDIAL INFARCTION [None]
